FAERS Safety Report 9883221 (Version 1)
Quarter: 2014Q1

REPORT INFORMATION
  Report Type: Spontaneous
  Country: IT (occurrence: IT)
  Receive Date: 20140208
  Receipt Date: 20140208
  Transmission Date: 20141002
  Serious: Yes (Other)
  Sender: FDA-Public Use
  Company Number: IT-MYLANLABS-2014S1002124

PATIENT
  Age: 36 Month
  Sex: Male

DRUGS (2)
  1. VALPROIC ACID [Suspect]
     Indication: PETIT MAL EPILEPSY
     Dosage: 20 MG/KG BODY WEIGHT (65.5 MCG/ML)
     Route: 065
  2. VALPROIC ACID [Suspect]
     Indication: PETIT MAL EPILEPSY
     Dosage: 30 MG/KG BODY WEIGHT
     Route: 065

REACTIONS (2)
  - Petit mal epilepsy [Recovered/Resolved]
  - Condition aggravated [Recovered/Resolved]
